FAERS Safety Report 9405565 (Version 3)
Quarter: 2013Q3

REPORT INFORMATION
  Report Type: Spontaneous
  Country: US (occurrence: US)
  Receive Date: 20130717
  Receipt Date: 20130923
  Transmission Date: 20140515
  Serious: Yes (Hospitalization, Other)
  Sender: FDA-Public Use
  Company Number: US-009507513-1307USA004817

PATIENT
  Sex: Female

DRUGS (5)
  1. REBETOL [Suspect]
     Indication: HEPATITIS C
     Dosage: UNK
     Dates: start: 20070101, end: 20070801
  2. REBETOL [Suspect]
     Dosage: UNK
     Dates: start: 20130613
  3. PEGASYS [Suspect]
     Indication: HEPATITIS C
     Dosage: UNK
     Dates: start: 20070101, end: 20070801
  4. PEGASYS [Suspect]
     Dosage: UNK
     Dates: start: 20130617
  5. VICTRELIS [Suspect]
     Indication: HEPATITIS C
     Dosage: UNK
     Dates: start: 20130715

REACTIONS (14)
  - Suicide attempt [Unknown]
  - Speech disorder [Unknown]
  - Asthma [Unknown]
  - Red blood cell count decreased [Unknown]
  - Dyspnoea [Unknown]
  - Memory impairment [Unknown]
  - Rash [Unknown]
  - Nausea [Unknown]
  - Vomiting [Unknown]
  - Pruritus [Unknown]
  - Skin reaction [Unknown]
  - Suicidal ideation [Unknown]
  - Ammonia increased [Unknown]
  - Influenza [Unknown]
